FAERS Safety Report 20863336 (Version 1)
Quarter: 2022Q2

REPORT INFORMATION
  Report Type: Spontaneous
  Country: US (occurrence: US)
  Receive Date: 20220523
  Receipt Date: 20220523
  Transmission Date: 20220721
  Serious: No
  Sender: FDA-Public Use
  Company Number: US-PFIZER INC-202200738836

PATIENT
  Age: 71 Year
  Sex: Female
  Weight: 68.04 kg

DRUGS (1)
  1. CYTOMEL [Suspect]
     Active Substance: LIOTHYRONINE SODIUM
     Dosage: 5 UG

REACTIONS (1)
  - Therapeutic response unexpected [Unknown]
